FAERS Safety Report 23390228 (Version 2)
Quarter: 2024Q1

REPORT INFORMATION
  Report Type: Spontaneous
  Country: US (occurrence: US)
  Receive Date: 20240111
  Receipt Date: 20240131
  Transmission Date: 20240410
  Serious: Yes (Hospitalization, Other)
  Sender: FDA-Public Use
  Company Number: US-E2BLSMVVAL-SPO/USA/24/0000107

PATIENT
  Sex: Female

DRUGS (4)
  1. LEVOFLOXACIN [Suspect]
     Active Substance: LEVOFLOXACIN
     Indication: Pneumonia
     Dosage: LEVOFLOXACIN TABLETS 750 MG - DRL 30 CT
     Dates: start: 20231212, end: 20231218
  2. OMEPRAZOLE [Concomitant]
     Active Substance: OMEPRAZOLE
  3. METOPROLOL [Concomitant]
     Active Substance: METOPROLOL
     Indication: Hypertension
  4. LISINOPRIL [Concomitant]
     Active Substance: LISINOPRIL
     Indication: Hypertension

REACTIONS (6)
  - Haemorrhage [Unknown]
  - Platelet count decreased [Unknown]
  - Muscle spasms [Unknown]
  - Peripheral swelling [Unknown]
  - Hypotension [Unknown]
  - Heart rate increased [Unknown]
